FAERS Safety Report 9040338 (Version 1)
Quarter: 2013Q1

REPORT INFORMATION
  Report Type: Report from Study
  Country: US (occurrence: US)
  Receive Date: 20130129
  Receipt Date: 20130129
  Transmission Date: 20140127
  Serious: Yes (Hospitalization)
  Sender: FDA-Public Use
  Company Number: US-ABBOTT-12P-163-0893340-00

PATIENT
  Sex: Male

DRUGS (2)
  1. HUMIRA 40 MG/0.8 ML PEN [Suspect]
     Indication: CROHN^S DISEASE
     Dosage: 40MG/0.8ML EVERY WEEK AS DIRECTED BY MD
     Route: 058
     Dates: start: 201111
  2. HUMIRA 40 MG/0.8 ML PEN [Suspect]
     Indication: RHEUMATOID ARTHRITIS

REACTIONS (3)
  - Gastrointestinal haemorrhage [Unknown]
  - Off label use [Not Recovered/Not Resolved]
  - Crohn^s disease [Not Recovered/Not Resolved]
